FAERS Safety Report 7970105-7 (Version None)
Quarter: 2011Q4

REPORT INFORMATION
  Report Type: 
  Country: None (occurrence: None)
  Receive Date: 20111122
  Receipt Date: 20110314
  Transmission Date: 20120403
  Serious: No
  Sender: FDA-Public Use
  Company Number: PHHY2011US57676

PATIENT
  Age: 32 Year
  Sex: Male

DRUGS (2)
  1. VITAMINS (NO INGREDIENTS/SUBSTANCES) [Concomitant]
  2. GILENYA [Suspect]
     Indication: MULTIPLE SCLEROSIS
     Dosage: 0.5 MG, DAILY, ORAL
     Route: 048
     Dates: start: 20110303

REACTIONS (1)
  - MUSCULOSKELETAL CHEST PAIN [None]
